FAERS Safety Report 5534024-8 (Version None)
Quarter: 2007Q4

REPORT INFORMATION
  Report Type: 
  Country: None (occurrence: None)
  Receive Date: 20071205
  Receipt Date: 20071126
  Transmission Date: 20080405
  Serious: Yes (Other)
  Sender: FDA-Public Use
  Company Number: PHFR2007CY03478

PATIENT
  Age: 8 Year
  Sex: Male

DRUGS (2)
  1. HOMEOPATHIC PREPARATIONS [Concomitant]
     Indication: ATTENTION DEFICIT/HYPERACTIVITY DISORDER
     Route: 065
  2. RITALIN [Suspect]
     Indication: ATTENTION DEFICIT/HYPERACTIVITY DISORDER
     Dosage: 10 MG/DAY
     Route: 048
     Dates: start: 20071010

REACTIONS (2)
  - HYDRONEPHROSIS [None]
  - RENAL COLIC [None]
